FAERS Safety Report 5799655-9 (Version None)
Quarter: 2008Q3

REPORT INFORMATION
  Report Type: 
  Country: None (occurrence: None)
  Receive Date: 20080702
  Receipt Date: 20080702
  Transmission Date: 20090109
  Serious: No
  Sender: FDA-Public Use
  Company Number: None

PATIENT
  Age: 87 Year
  Sex: Female

DRUGS (1)
  1. DIGOXIN [Suspect]

REACTIONS (3)
  - DIZZINESS [None]
  - FATIGUE [None]
  - NAUSEA [None]
